FAERS Safety Report 17900731 (Version 1)
Quarter: 2020Q2

REPORT INFORMATION
  Report Type: Spontaneous
  Country: US (occurrence: US)
  Receive Date: 20200615
  Receipt Date: 20200615
  Transmission Date: 20200714
  Serious: No
  Sender: FDA-Public Use
  Company Number: None

PATIENT
  Age: 26 Year
  Sex: Female

DRUGS (7)
  1. TRIAMCINOLONE CREAM [Concomitant]
     Active Substance: TRIAMCINOLONE
  2. METFORMIN [Concomitant]
     Active Substance: METFORMIN HYDROCHLORIDE
  3. SINGULAIR [Concomitant]
     Active Substance: MONTELUKAST SODIUM
  4. VITAMIN D [Concomitant]
     Active Substance: VITAMIN D NOS
  5. QVAR REDIHALER [Suspect]
     Active Substance: BECLOMETHASONE DIPROPIONATE
  6. FLUTICASONE PROPIONATE. [Concomitant]
     Active Substance: FLUTICASONE PROPIONATE
  7. ALBUTEROL RESCUE INHALER [Concomitant]

REACTIONS (4)
  - Device delivery system issue [None]
  - Anxiety [None]
  - Therapy interrupted [None]
  - Heart rate irregular [None]
